FAERS Safety Report 12973896 (Version 2)
Quarter: 2016Q4

REPORT INFORMATION
  Report Type: Spontaneous
  Country: BR (occurrence: BR)
  Receive Date: 20161124
  Receipt Date: 20161213
  Transmission Date: 20170207
  Serious: Yes (Hospitalization, Other)
  Sender: FDA-Public Use
  Company Number: BR-BEH-2016075506

PATIENT
  Age: 12 Year
  Sex: Female
  Weight: 25 kg

DRUGS (3)
  1. SANDOGLOBULINA [Suspect]
     Active Substance: HUMAN IMMUNOGLOBULIN G
     Indication: HYPOTHYROIDISM
  2. SANDOGLOBULINA [Suspect]
     Active Substance: HUMAN IMMUNOGLOBULIN G
     Indication: CYTOGENETIC ABNORMALITY
  3. SANDOGLOBULINA [Suspect]
     Active Substance: HUMAN IMMUNOGLOBULIN G
     Indication: PRIMARY IMMUNODEFICIENCY SYNDROME
     Dosage: 12 G, TOT
     Route: 042
     Dates: start: 20161024, end: 20161024

REACTIONS (4)
  - Cyanosis [Recovered/Resolved]
  - Hypotension [Recovered/Resolved]
  - Decreased activity [Recovered/Resolved]
  - Oxygen saturation decreased [Recovered/Resolved]

NARRATIVE: CASE EVENT DATE: 20161024
